FAERS Safety Report 9445099 (Version 2)
Quarter: 2013Q3

REPORT INFORMATION
  Report Type: Spontaneous
  Country: FR (occurrence: FR)
  Receive Date: 20130807
  Receipt Date: 20130819
  Transmission Date: 20140515
  Serious: No
  Sender: FDA-Public Use
  Company Number: FR-JNJFOC-20130801130

PATIENT
  Age: 42 Year
  Sex: Male

DRUGS (1)
  1. DUROGESIC [Suspect]
     Indication: SARCOMA
     Route: 062

REACTIONS (2)
  - Product quality issue [Unknown]
  - Inappropriate schedule of drug administration [Unknown]
